FAERS Safety Report 17225039 (Version 1)
Quarter: 2019Q4

REPORT INFORMATION
  Report Type: Spontaneous
  Country: US (occurrence: US)
  Receive Date: 20191209
  Receipt Date: 20191209
  Transmission Date: 20200122
  Serious: Yes (Other)
  Sender: FDA-Public Use
  Company Number: None

PATIENT
  Age: 62 Year
  Sex: Female

DRUGS (14)
  1. ESCITALORPAM TAB [Concomitant]
  2. TRAMADOL HCL TAB [Concomitant]
  3. LEFLUNOMIDE TAB [Concomitant]
     Active Substance: LEFLUNOMIDE
  4. LORATADINE TAB [Concomitant]
  5. BUPROPN HCL TAB [Concomitant]
  6. METOPROLOL TAR TAB [Concomitant]
  7. MESALAMINE TAB [Concomitant]
  8. BUPROPN HCL TAB [Concomitant]
  9. ENBREL [Suspect]
     Active Substance: ETANERCEPT
     Route: 058
     Dates: start: 20191011
  10. FOLIC ACID TAB [Concomitant]
  11. VENTOLIN HFA AER [Concomitant]
  12. FOLIC ACID TAB [Concomitant]
  13. MONTELUKAST AB [Concomitant]
  14. FLUTICASONE SPR [Concomitant]

REACTIONS (2)
  - Knee arthroplasty [None]
  - Therapy cessation [None]
